FAERS Safety Report 18211361 (Version 1)
Quarter: 2020Q3

REPORT INFORMATION
  Report Type: Spontaneous
  Country: FR (occurrence: FR)
  Receive Date: 20200831
  Receipt Date: 20200831
  Transmission Date: 20201103
  Serious: Yes (Hospitalization)
  Sender: FDA-Public Use
  Company Number: FR-TEVA-2020-FR-1821008

PATIENT
  Age: 67 Year
  Sex: Female

DRUGS (17)
  1. KARDEGIC [Concomitant]
     Active Substance: ASPIRIN DL-LYSINE
     Indication: ARTERIAL DISORDER
     Dosage: 1 DOSAGE FORM
     Route: 048
  2. ABASAGLAR [Concomitant]
     Active Substance: INSULIN GLARGINE
     Indication: INSULIN-REQUIRING TYPE 2 DIABETES MELLITUS
     Dosage: 34 IU
     Route: 058
  3. LERCANIDIPINE (CHLORHYDRATE DE) [Concomitant]
     Active Substance: LERCANIDIPINE HYDROCHLORIDE
     Indication: HYPERTENSION
     Dosage: 20MG
     Route: 048
     Dates: end: 20200713
  4. LYRICA [Concomitant]
     Active Substance: PREGABALIN
     Indication: DIABETIC NEUROPATHY
     Dosage: 1 DOSAGE FORM
     Route: 048
     Dates: end: 20200709
  5. METFORMINE [Concomitant]
     Active Substance: METFORMIN HYDROCHLORIDE
     Indication: INSULIN-REQUIRING TYPE 2 DIABETES MELLITUS
     Dosage: 2G
     Route: 048
     Dates: end: 20200709
  6. NEBIVOLOL. [Concomitant]
     Active Substance: NEBIVOLOL
     Indication: HYPERTENSION
     Dosage: 10KU
     Route: 048
     Dates: end: 20200709
  7. ALDACTONE [Interacting]
     Active Substance: SPIRONOLACTONE
     Indication: HYPERTENSION
     Dosage: 1 DOSAGE FORM
     Route: 048
     Dates: end: 20200709
  8. ADENURIC 80 MG, COMPRIME PELLICULE [Concomitant]
     Active Substance: FEBUXOSTAT
     Dosage: 1 DOSAGE FORM
     Route: 048
  9. APRANAX 550 MG, COMPRIM? PELLICUL? S?CABLE [Interacting]
     Active Substance: NAPROXEN
     Indication: BACK PAIN
     Dosage: 2 DOSAGE FORMS
     Route: 048
     Dates: start: 20200625, end: 20200705
  10. LASILIX 40 MG, COMPRIME SECABLE [Interacting]
     Active Substance: FUROSEMIDE
     Indication: HYPERTENSION
     Dosage: 2 DOSAGE FORMS
     Route: 048
     Dates: end: 20200709
  11. RAMIPRIL. [Suspect]
     Active Substance: RAMIPRIL
     Indication: HYPERTENSION
     Dosage: 5MG
     Route: 048
     Dates: end: 20200709
  12. ATORVASTATINE [Concomitant]
     Active Substance: ATORVASTATIN
     Indication: DYSLIPIDAEMIA
     Dosage: 20MG
     Route: 048
  13. NOVORAPID [Concomitant]
     Active Substance: INSULIN ASPART
     Indication: INSULIN-REQUIRING TYPE 2 DIABETES MELLITUS
     Dosage: 14?15?18 UI
     Route: 058
  14. ESOMEPRAZOLE. [Concomitant]
     Active Substance: ESOMEPRAZOLE MAGNESIUM
     Dosage: 40MG
     Route: 048
     Dates: end: 20200709
  15. LEVOTHYROX 50 MICROGRAMMES, COMPRIME SECABLE [Concomitant]
     Active Substance: LEVOTHYROXINE SODIUM
     Indication: HYPOTHYROIDISM
     Dosage: 1 DOSAGE FORM
     Route: 048
  16. IXPRIM [Concomitant]
     Active Substance: ACETAMINOPHEN\TRAMADOL HYDROCHLORIDE
     Indication: PAIN
     Dosage: 3 DOSAGE FORMS
     Route: 048
     Dates: end: 20200709
  17. DAFALGAN [Concomitant]
     Active Substance: ACETAMINOPHEN
     Indication: PAIN
     Dosage: 1G
     Route: 048
     Dates: end: 20200711

REACTIONS (4)
  - Acute kidney injury [Recovering/Resolving]
  - Electrocardiogram abnormal [Recovered/Resolved]
  - Drug interaction [Recovered/Resolved]
  - Hyperkalaemia [Recovered/Resolved]

NARRATIVE: CASE EVENT DATE: 20200625
